FAERS Safety Report 25321453 (Version 1)
Quarter: 2025Q2

REPORT INFORMATION
  Report Type: Report from Study
  Country: US (occurrence: US)
  Receive Date: 20250516
  Receipt Date: 20250516
  Transmission Date: 20250716
  Serious: Yes (Hospitalization)
  Sender: ABBVIE
  Company Number: US-ABBVIE-6276997

PATIENT
  Sex: Female

DRUGS (1)
  1. HUMIRA [Suspect]
     Active Substance: ADALIMUMAB
     Indication: Rheumatoid arthritis
     Route: 058
     Dates: start: 20141101

REACTIONS (6)
  - Noninfective oophoritis [Not Recovered/Not Resolved]
  - White blood cell count increased [Recovering/Resolving]
  - Infection [Not Recovered/Not Resolved]
  - Colitis [Not Recovered/Not Resolved]
  - Proctitis [Not Recovered/Not Resolved]
  - Gastrointestinal inflammation [Not Recovered/Not Resolved]
